FAERS Safety Report 5213182-9 (Version None)
Quarter: 2007Q1

REPORT INFORMATION
  Report Type: 
  Country: None (occurrence: None)
  Receive Date: 20070118
  Receipt Date: 20070118
  Transmission Date: 20070707
  Serious: No
  Sender: FDA-Public Use
  Company Number: None

PATIENT
  Sex: Male
  Weight: 82.3 kg

DRUGS (4)
  1. TEMOZOLOMIDE [Suspect]
     Dosage: 2000 MG
  2. DECADRON [Concomitant]
  3. KEPPRA [Concomitant]
  4. LAMICTAL [Concomitant]

REACTIONS (1)
  - DEATH [None]
